FAERS Safety Report 12198369 (Version 3)
Quarter: 2020Q4

REPORT INFORMATION
  Report Type: Spontaneous
  Country: US (occurrence: US)
  Receive Date: 20160322
  Receipt Date: 20201213
  Transmission Date: 20210113
  Serious: Yes (Other)
  Sender: FDA-Public Use
  Company Number: US-JNJFOC-20160311907

PATIENT
  Age: 1 Decade
  Sex: Male

DRUGS (2)
  1. RISPERDAL [Suspect]
     Active Substance: RISPERIDONE
     Indication: ATTENTION DEFICIT HYPERACTIVITY DISORDER
     Route: 048
     Dates: start: 2003, end: 2015
  2. RISPERDAL [Suspect]
     Active Substance: RISPERIDONE
     Dosage: VARYING DOSE OF 0.5 MG AND 1 MG
     Route: 048

REACTIONS (4)
  - Product use in unapproved indication [Unknown]
  - Abnormal weight gain [Unknown]
  - Off label use [Unknown]
  - Gynaecomastia [Unknown]

NARRATIVE: CASE EVENT DATE: 2003
